FAERS Safety Report 4405517-1 (Version None)
Quarter: 2004Q3

REPORT INFORMATION
  Report Type: 
  Country: None (occurrence: None)
  Receive Date: 20040716
  Receipt Date: 20040709
  Transmission Date: 20050211
  Serious: Yes (Hospitalization)
  Sender: FDA-Public Use
  Company Number: 2004-0007216

PATIENT
  Age: 60 Year
  Sex: Male

DRUGS (8)
  1. VIREAD [Suspect]
     Indication: HIV INFECTION
     Dosage: 300 MG, 1 IN 1 D, ORAL
     Route: 048
     Dates: start: 20020202
  2. VIDEX [Concomitant]
  3. ZIAGEN [Concomitant]
  4. STOCRIN (EFAVIRENZ) [Concomitant]
  5. SUCRALFATE [Concomitant]
  6. PENFILL 30R (INSULIN HUMAN) [Concomitant]
  7. RECOMBINATE [Concomitant]
  8. PENTAMIDINE ISETIONATE (PENTAMIDINE ISETHIONATE) [Concomitant]

REACTIONS (2)
  - GAMMA-GLUTAMYLTRANSFERASE INCREASED [None]
  - PNEUMOCYSTIS CARINII PNEUMONIA [None]
